FAERS Safety Report 23385992 (Version 9)
Quarter: 2025Q1

REPORT INFORMATION
  Report Type: Spontaneous
  Country: CA (occurrence: CA)
  Receive Date: 20240110
  Receipt Date: 20250228
  Transmission Date: 20250408
  Serious: Yes (Other)
  Sender: SANDOZ
  Company Number: CA-SANDOZ-SDZ2024CA002013

PATIENT
  Age: 53 Year
  Sex: Male

DRUGS (729)
  1. ADALIMUMAB [Suspect]
     Active Substance: ADALIMUMAB
     Indication: Deep vein thrombosis
     Route: 048
  2. ADALIMUMAB [Suspect]
     Active Substance: ADALIMUMAB
     Route: 048
  3. ADALIMUMAB [Suspect]
     Active Substance: ADALIMUMAB
     Route: 048
  4. ADALIMUMAB [Suspect]
     Active Substance: ADALIMUMAB
     Route: 058
  5. ADALIMUMAB [Suspect]
     Active Substance: ADALIMUMAB
     Route: 058
  6. ADALIMUMAB [Suspect]
     Active Substance: ADALIMUMAB
     Route: 058
  7. ADALIMUMAB [Suspect]
     Active Substance: ADALIMUMAB
     Indication: Colitis ulcerative
     Route: 058
  8. ADALIMUMAB [Suspect]
     Active Substance: ADALIMUMAB
     Route: 058
  9. ADALIMUMAB [Suspect]
     Active Substance: ADALIMUMAB
     Route: 058
  10. ADALIMUMAB [Suspect]
     Active Substance: ADALIMUMAB
     Route: 058
  11. ADALIMUMAB [Suspect]
     Active Substance: ADALIMUMAB
     Route: 058
  12. ADALIMUMAB [Suspect]
     Active Substance: ADALIMUMAB
     Route: 058
  13. ADALIMUMAB [Suspect]
     Active Substance: ADALIMUMAB
     Route: 058
  14. ADALIMUMAB [Suspect]
     Active Substance: ADALIMUMAB
     Indication: Crohn^s disease
     Route: 065
  15. ADALIMUMAB [Suspect]
     Active Substance: ADALIMUMAB
     Route: 065
  16. ADALIMUMAB [Suspect]
     Active Substance: ADALIMUMAB
     Route: 065
  17. ADALIMUMAB [Suspect]
     Active Substance: ADALIMUMAB
     Route: 065
  18. ADALIMUMAB [Suspect]
     Active Substance: ADALIMUMAB
     Route: 065
  19. ACETAMINOPHEN [Suspect]
     Active Substance: ACETAMINOPHEN
     Dosage: 4 DF, QD (1 EVERY 1 DAYS)
     Route: 065
  20. ACETAMINOPHEN [Suspect]
     Active Substance: ACETAMINOPHEN
     Indication: Ill-defined disorder
     Dosage: 500 MG, 4 EVERY 1 DAYS
     Route: 065
  21. ACETAMINOPHEN [Suspect]
     Active Substance: ACETAMINOPHEN
     Route: 065
  22. ACETAMINOPHEN [Suspect]
     Active Substance: ACETAMINOPHEN
     Route: 065
  23. ACETAMINOPHEN [Suspect]
     Active Substance: ACETAMINOPHEN
     Route: 065
  24. ACETAMINOPHEN [Suspect]
     Active Substance: ACETAMINOPHEN
     Route: 065
  25. ADALIMUMAB [Suspect]
     Active Substance: ADALIMUMAB
     Indication: Colitis ulcerative
     Route: 048
  26. ADALIMUMAB [Suspect]
     Active Substance: ADALIMUMAB
     Indication: Crohn^s disease
     Route: 058
  27. ADALIMUMAB [Suspect]
     Active Substance: ADALIMUMAB
     Indication: Crohn^s disease
     Route: 042
  28. ADALIMUMAB [Suspect]
     Active Substance: ADALIMUMAB
     Indication: Deep vein thrombosis
     Route: 058
  29. ADALIMUMAB [Suspect]
     Active Substance: ADALIMUMAB
     Route: 058
  30. ADALIMUMAB [Suspect]
     Active Substance: ADALIMUMAB
     Indication: Colitis ulcerative
     Route: 065
  31. ADALIMUMAB [Suspect]
     Active Substance: ADALIMUMAB
     Indication: Deep vein thrombosis
     Route: 065
  32. ADALIMUMAB [Suspect]
     Active Substance: ADALIMUMAB
     Route: 065
  33. ADALIMUMAB [Suspect]
     Active Substance: ADALIMUMAB
     Route: 065
  34. ALBENDAZOLE [Suspect]
     Active Substance: ALBENDAZOLE
     Route: 042
  35. ALBENDAZOLE [Suspect]
     Active Substance: ALBENDAZOLE
     Route: 042
  36. ALBENDAZOLE [Suspect]
     Active Substance: ALBENDAZOLE
     Route: 042
  37. ALBENDAZOLE [Suspect]
     Active Substance: ALBENDAZOLE
     Route: 042
  38. ALBENDAZOLE [Suspect]
     Active Substance: ALBENDAZOLE
     Indication: Crohn^s disease
     Route: 048
  39. ALBENDAZOLE [Suspect]
     Active Substance: ALBENDAZOLE
     Route: 048
  40. ALBENDAZOLE [Suspect]
     Active Substance: ALBENDAZOLE
     Route: 048
  41. ALBENDAZOLE [Suspect]
     Active Substance: ALBENDAZOLE
     Indication: Colitis ulcerative
     Route: 065
  42. ALBENDAZOLE [Suspect]
     Active Substance: ALBENDAZOLE
     Indication: Deep vein thrombosis
     Route: 065
  43. ASACOL [Suspect]
     Active Substance: MESALAMINE
     Dosage: 1 DF, QD
     Route: 048
  44. ASACOL [Suspect]
     Active Substance: MESALAMINE
     Dosage: 1 DF, QD
     Route: 048
  45. ASACOL [Suspect]
     Active Substance: MESALAMINE
     Dosage: 1 DF, QD
     Route: 065
  46. ASACOL [Suspect]
     Active Substance: MESALAMINE
     Route: 065
  47. ASACOL [Suspect]
     Active Substance: MESALAMINE
     Route: 065
  48. ASACOL [Suspect]
     Active Substance: MESALAMINE
     Route: 065
  49. ASACOL [Suspect]
     Active Substance: MESALAMINE
     Dosage: 12 DF, QD
     Route: 065
  50. ASACOL [Suspect]
     Active Substance: MESALAMINE
     Dosage: 12 DF, QD
     Route: 065
  51. ASACOL [Suspect]
     Active Substance: MESALAMINE
     Dosage: 155.517 MG, QD (1 EVERY 1 DAYS)
     Route: 065
  52. ASACOL [Suspect]
     Active Substance: MESALAMINE
     Dosage: 194.396 MG, QD (1 EVERY 1 DAYS)
     Route: 065
  53. ASACOL [Suspect]
     Active Substance: MESALAMINE
     Dosage: 2 DF, QD
     Route: 065
  54. ASACOL [Suspect]
     Active Substance: MESALAMINE
     Indication: Colitis ulcerative
     Dosage: 2.4 G, QD
     Route: 065
  55. ASACOL [Suspect]
     Active Substance: MESALAMINE
     Dosage: 2.4 G, QD
     Route: 065
  56. ASACOL [Suspect]
     Active Substance: MESALAMINE
     Dosage: 2.4 G, QD
     Route: 065
  57. ASACOL [Suspect]
     Active Substance: MESALAMINE
     Dosage: 2.4 G, QD
     Route: 065
  58. ASACOL [Suspect]
     Active Substance: MESALAMINE
     Route: 065
  59. ASACOL [Suspect]
     Active Substance: MESALAMINE
     Dosage: 24 DF, QD
     Route: 065
  60. ASACOL [Suspect]
     Active Substance: MESALAMINE
     Dosage: 24 DF, QD
     Route: 065
  61. ASACOL [Suspect]
     Active Substance: MESALAMINE
     Dosage: 3 G, QD
     Route: 065
  62. ASACOL [Suspect]
     Active Substance: MESALAMINE
     Dosage: 3 G, QD
     Route: 065
  63. ASACOL [Suspect]
     Active Substance: MESALAMINE
     Route: 065
  64. ASACOL [Suspect]
     Active Substance: MESALAMINE
     Dosage: 3 DF, QD
     Route: 065
  65. ASACOL [Suspect]
     Active Substance: MESALAMINE
     Dosage: 3 DF, BID
     Route: 065
  66. ASACOL [Suspect]
     Active Substance: MESALAMINE
     Dosage: 3 DF, BID
     Route: 065
  67. ASACOL [Suspect]
     Active Substance: MESALAMINE
     Indication: Product used for unknown indication
     Dosage: 3 DF, BID (1 EVERY 2 DAYS)
     Route: 065
  68. ASACOL [Suspect]
     Active Substance: MESALAMINE
     Route: 065
  69. ASACOL [Suspect]
     Active Substance: MESALAMINE
     Route: 065
  70. ASACOL [Suspect]
     Active Substance: MESALAMINE
     Dosage: 30 DF, BID
     Route: 065
  71. ASACOL [Suspect]
     Active Substance: MESALAMINE
     Dosage: 4.8 G, QD
     Route: 065
  72. ASACOL [Suspect]
     Active Substance: MESALAMINE
     Dosage: 4.8 G, QD
     Route: 065
  73. ASACOL [Suspect]
     Active Substance: MESALAMINE
     Dosage: 4.8 G, QD
     Route: 065
  74. ASACOL [Suspect]
     Active Substance: MESALAMINE
     Dosage: 4.8 G, QD
     Route: 065
  75. ASACOL [Suspect]
     Active Substance: MESALAMINE
     Dosage: 4.8 G, QD
     Route: 065
  76. ASACOL [Suspect]
     Active Substance: MESALAMINE
     Dosage: 4.8 G, QD
     Route: 065
  77. ASACOL [Suspect]
     Active Substance: MESALAMINE
     Route: 065
  78. ASACOL [Suspect]
     Active Substance: MESALAMINE
     Dosage: 4.8 DF, BID (1 EVERY 2 DAYS)
     Route: 065
  79. ASACOL [Suspect]
     Active Substance: MESALAMINE
     Dosage: 40 MG, QD
     Route: 065
  80. ASACOL [Suspect]
     Active Substance: MESALAMINE
     Dosage: 40 MG, QD
     Route: 065
  81. ASACOL [Suspect]
     Active Substance: MESALAMINE
     Dosage: 50 MG, QD
     Route: 065
  82. ASACOL [Suspect]
     Active Substance: MESALAMINE
     Route: 048
  83. ASACOL [Suspect]
     Active Substance: MESALAMINE
     Route: 048
  84. ASACOL [Suspect]
     Active Substance: MESALAMINE
     Route: 065
  85. ASACOL [Suspect]
     Active Substance: MESALAMINE
     Dosage: 6 DF, QD
     Route: 065
  86. ASACOL [Suspect]
     Active Substance: MESALAMINE
     Dosage: 6 DF, QD
     Route: 065
  87. ASACOL [Suspect]
     Active Substance: MESALAMINE
     Dosage: 6 DF, QD
     Route: 065
  88. ASACOL [Suspect]
     Active Substance: MESALAMINE
     Dosage: 6 DF, BID (1 EVERY .2 DAYS)
     Route: 065
  89. ASACOL [Suspect]
     Active Substance: MESALAMINE
     Dosage: 50 UNK, QD
     Route: 065
  90. ASACOL [Suspect]
     Active Substance: MESALAMINE
     Route: 065
  91. ASACOL [Suspect]
     Active Substance: MESALAMINE
     Route: 065
  92. ASACOL [Suspect]
     Active Substance: MESALAMINE
     Route: 065
  93. ASACOL [Suspect]
     Active Substance: MESALAMINE
     Route: 065
  94. ASACOL [Suspect]
     Active Substance: MESALAMINE
     Indication: Colitis ulcerative
  95. ASPIRIN [Suspect]
     Active Substance: ASPIRIN
     Indication: Ill-defined disorder
     Route: 065
  96. ASPIRIN [Suspect]
     Active Substance: ASPIRIN
     Indication: Product used for unknown indication
     Route: 065
  97. BUDESONIDE [Suspect]
     Active Substance: BUDESONIDE
     Dosage: 1 DF, QD
     Route: 048
  98. BUDESONIDE [Suspect]
     Active Substance: BUDESONIDE
     Dosage: 1 DF, QD
     Route: 048
  99. BUDESONIDE [Suspect]
     Active Substance: BUDESONIDE
     Dosage: 1 DF, QD
     Route: 048
  100. BUDESONIDE [Suspect]
     Active Substance: BUDESONIDE
     Dosage: 1 DF, QD
     Route: 048
  101. BUDESONIDE [Suspect]
     Active Substance: BUDESONIDE
     Dosage: 1 DF, QD
     Route: 048
  102. BUDESONIDE [Suspect]
     Active Substance: BUDESONIDE
     Dosage: 1 DF, QD
     Route: 048
  103. BUDESONIDE [Suspect]
     Active Substance: BUDESONIDE
     Dosage: 1 DF, QD
     Route: 048
  104. BUDESONIDE [Suspect]
     Active Substance: BUDESONIDE
     Dosage: 1 DF, QD
     Route: 048
  105. BUDESONIDE [Suspect]
     Active Substance: BUDESONIDE
     Dosage: 1 DF, QD
     Route: 048
  106. BUDESONIDE [Suspect]
     Active Substance: BUDESONIDE
     Dosage: 1 DF, QD
     Route: 048
  107. BUDESONIDE [Suspect]
     Active Substance: BUDESONIDE
     Dosage: 1 DF, QD
     Route: 048
  108. BUDESONIDE [Suspect]
     Active Substance: BUDESONIDE
     Dosage: 1 DF, QD
     Route: 048
  109. BUDESONIDE [Suspect]
     Active Substance: BUDESONIDE
     Dosage: 1 DF, QD
     Route: 048
  110. BUDESONIDE [Suspect]
     Active Substance: BUDESONIDE
     Dosage: 1 DF, QD
     Route: 048
  111. BUDESONIDE [Suspect]
     Active Substance: BUDESONIDE
     Dosage: 1 DF, QD
     Route: 048
  112. BUDESONIDE [Suspect]
     Active Substance: BUDESONIDE
     Dosage: 1 DF, QD
     Route: 048
  113. BUDESONIDE [Suspect]
     Active Substance: BUDESONIDE
     Dosage: 1 DF, QD
     Route: 048
  114. BUDESONIDE [Suspect]
     Active Substance: BUDESONIDE
     Indication: Colitis ulcerative
     Dosage: 1 DF, QD
     Route: 065
  115. BUDESONIDE [Suspect]
     Active Substance: BUDESONIDE
     Dosage: 1 DF, QD
     Route: 065
  116. BUDESONIDE [Suspect]
     Active Substance: BUDESONIDE
     Dosage: 1 DF, QD
     Route: 065
  117. BUDESONIDE [Suspect]
     Active Substance: BUDESONIDE
     Route: 065
  118. BUDESONIDE [Suspect]
     Active Substance: BUDESONIDE
     Route: 048
  119. BUDESONIDE [Suspect]
     Active Substance: BUDESONIDE
     Route: 048
  120. BUDESONIDE [Suspect]
     Active Substance: BUDESONIDE
     Route: 048
  121. BUDESONIDE [Suspect]
     Active Substance: BUDESONIDE
     Route: 048
  122. BUDESONIDE [Suspect]
     Active Substance: BUDESONIDE
     Dosage: 245 MG, QD
     Route: 048
  123. BUDESONIDE [Suspect]
     Active Substance: BUDESONIDE
     Dosage: 245 MG, QD
     Route: 048
  124. BUDESONIDE [Suspect]
     Active Substance: BUDESONIDE
     Route: 065
  125. BUDESONIDE [Suspect]
     Active Substance: BUDESONIDE
     Dosage: 8 DF, QD
     Route: 048
  126. BUDESONIDE [Suspect]
     Active Substance: BUDESONIDE
     Dosage: 8 DF, QD
     Route: 065
  127. BUDESONIDE [Suspect]
     Active Substance: BUDESONIDE
     Route: 065
  128. BUDESONIDE [Suspect]
     Active Substance: BUDESONIDE
     Indication: Product used for unknown indication
     Route: 048
  129. BUDESONIDE [Suspect]
     Active Substance: BUDESONIDE
     Route: 048
  130. BUDESONIDE [Suspect]
     Active Substance: BUDESONIDE
     Route: 048
  131. BUDESONIDE [Suspect]
     Active Substance: BUDESONIDE
     Route: 048
  132. BUDESONIDE [Suspect]
     Active Substance: BUDESONIDE
     Route: 048
  133. BUDESONIDE [Suspect]
     Active Substance: BUDESONIDE
     Route: 048
  134. BUDESONIDE [Suspect]
     Active Substance: BUDESONIDE
     Route: 048
  135. BUDESONIDE [Suspect]
     Active Substance: BUDESONIDE
     Route: 048
  136. BUDESONIDE [Suspect]
     Active Substance: BUDESONIDE
     Route: 048
  137. BUDESONIDE [Suspect]
     Active Substance: BUDESONIDE
     Route: 048
  138. BUDESONIDE [Suspect]
     Active Substance: BUDESONIDE
     Route: 048
  139. BUDESONIDE [Suspect]
     Active Substance: BUDESONIDE
     Route: 048
  140. BUDESONIDE [Suspect]
     Active Substance: BUDESONIDE
     Route: 048
  141. BUDESONIDE [Suspect]
     Active Substance: BUDESONIDE
     Route: 048
  142. BUDESONIDE [Suspect]
     Active Substance: BUDESONIDE
     Route: 048
  143. BUDESONIDE [Suspect]
     Active Substance: BUDESONIDE
     Dosage: UNK UNK, QD
     Route: 048
  144. BUDESONIDE [Suspect]
     Active Substance: BUDESONIDE
     Route: 048
  145. BUDESONIDE [Suspect]
     Active Substance: BUDESONIDE
     Route: 048
  146. BUDESONIDE [Suspect]
     Active Substance: BUDESONIDE
     Route: 048
  147. CANDESARTAN [Suspect]
     Active Substance: CANDESARTAN
     Indication: Colitis ulcerative
     Route: 048
  148. CANDESARTAN [Suspect]
     Active Substance: CANDESARTAN
     Indication: Product used for unknown indication
     Route: 048
  149. CANDESARTAN [Suspect]
     Active Substance: CANDESARTAN
     Route: 048
  150. CANDESARTAN [Suspect]
     Active Substance: CANDESARTAN
     Route: 048
  151. AZD-1222 [Suspect]
     Active Substance: AZD-1222
     Route: 065
  152. AZD-1222 [Suspect]
     Active Substance: AZD-1222
     Route: 065
  153. AZD-1222 [Suspect]
     Active Substance: AZD-1222
     Route: 065
  154. AZD-1222 [Suspect]
     Active Substance: AZD-1222
     Indication: COVID-19 immunisation
     Route: 065
  155. AZD-1222 [Suspect]
     Active Substance: AZD-1222
     Route: 065
  156. AZD-1222 [Suspect]
     Active Substance: AZD-1222
     Route: 065
  157. AZD-1222 [Suspect]
     Active Substance: AZD-1222
     Route: 050
  158. AZD-1222 [Suspect]
     Active Substance: AZD-1222
     Indication: Adverse drug reaction
     Route: 065
  159. AZD-1222 [Suspect]
     Active Substance: AZD-1222
     Route: 065
  160. AZD-1222 [Suspect]
     Active Substance: AZD-1222
     Route: 065
  161. AZD-1222 [Suspect]
     Active Substance: AZD-1222
     Route: 065
  162. AZD-1222 [Suspect]
     Active Substance: AZD-1222
     Route: 065
  163. AZD-1222 [Suspect]
     Active Substance: AZD-1222
     Route: 065
  164. AZD-1222 [Suspect]
     Active Substance: AZD-1222
     Route: 065
  165. AZD-1222 [Suspect]
     Active Substance: AZD-1222
     Route: 065
  166. AZD-1222 [Suspect]
     Active Substance: AZD-1222
     Route: 065
  167. AZD-1222 [Suspect]
     Active Substance: AZD-1222
     Route: 065
  168. AZD-1222 [Suspect]
     Active Substance: AZD-1222
     Route: 065
  169. AZD-1222 [Suspect]
     Active Substance: AZD-1222
     Route: 065
  170. AZD-1222 [Suspect]
     Active Substance: AZD-1222
     Route: 065
  171. AZD-1222 [Suspect]
     Active Substance: AZD-1222
     Route: 065
  172. AZD-1222 [Suspect]
     Active Substance: AZD-1222
     Route: 065
  173. AZD-1222 [Suspect]
     Active Substance: AZD-1222
     Route: 065
  174. AZD-1222 [Suspect]
     Active Substance: AZD-1222
     Route: 065
  175. AZD-1222 [Suspect]
     Active Substance: AZD-1222
     Route: 065
  176. AZD-1222 [Suspect]
     Active Substance: AZD-1222
     Route: 065
  177. AZD-1222 [Suspect]
     Active Substance: AZD-1222
     Route: 065
  178. AZD-1222 [Suspect]
     Active Substance: AZD-1222
     Route: 065
  179. AZD-1222 [Suspect]
     Active Substance: AZD-1222
     Route: 065
  180. AZD-1222 [Suspect]
     Active Substance: AZD-1222
     Route: 065
  181. AZD-1222 [Suspect]
     Active Substance: AZD-1222
     Route: 065
  182. AZD-1222 [Suspect]
     Active Substance: AZD-1222
     Route: 065
  183. AZD-1222 [Suspect]
     Active Substance: AZD-1222
     Route: 065
  184. AZD-1222 [Suspect]
     Active Substance: AZD-1222
     Route: 065
  185. COMIRNATY (TOZINAMERAN) [Suspect]
     Active Substance: TOZINAMERAN
     Indication: Product used for unknown indication
     Route: 065
  186. CORTIFOAM [Suspect]
     Active Substance: HYDROCORTISONE ACETATE
     Indication: Deep vein thrombosis
     Dosage: 1 DF, 1 EVERY 1 DAYS
     Route: 065
  187. CORTIFOAM [Suspect]
     Active Substance: HYDROCORTISONE ACETATE
     Dosage: 1 DF, QD
     Route: 048
  188. CORTIFOAM [Suspect]
     Active Substance: HYDROCORTISONE ACETATE
     Dosage: 1 DF, QD 1 EVERY 1 DAYS
     Route: 065
  189. CORTIFOAM [Suspect]
     Active Substance: HYDROCORTISONE ACETATE
     Route: 065
  190. CORTIFOAM [Suspect]
     Active Substance: HYDROCORTISONE ACETATE
     Route: 048
  191. CORTIFOAM [Suspect]
     Active Substance: HYDROCORTISONE ACETATE
     Indication: Colitis ulcerative
     Route: 048
  192. CORTIFOAM [Suspect]
     Active Substance: HYDROCORTISONE ACETATE
     Route: 048
  193. CORTIFOAM [Suspect]
     Active Substance: HYDROCORTISONE ACETATE
     Dosage: UNK, QD
     Route: 065
  194. CORTIFOAM [Suspect]
     Active Substance: HYDROCORTISONE ACETATE
     Route: 065
  195. CORTIFOAM [Suspect]
     Active Substance: HYDROCORTISONE ACETATE
     Route: 065
  196. CORTIFOAM [Suspect]
     Active Substance: HYDROCORTISONE ACETATE
     Route: 065
  197. CORTIFOAM [Suspect]
     Active Substance: HYDROCORTISONE ACETATE
     Route: 065
  198. CORTIFOAM [Suspect]
     Active Substance: HYDROCORTISONE ACETATE
     Route: 065
  199. CORTIFOAM [Suspect]
     Active Substance: HYDROCORTISONE ACETATE
     Route: 065
  200. CORTIFOAM [Suspect]
     Active Substance: HYDROCORTISONE ACETATE
     Route: 065
  201. CORTIFOAM [Suspect]
     Active Substance: HYDROCORTISONE ACETATE
     Route: 065
  202. CORTIFOAM [Suspect]
     Active Substance: HYDROCORTISONE ACETATE
     Route: 065
  203. CORTIFOAM [Suspect]
     Active Substance: HYDROCORTISONE ACETATE
     Route: 065
  204. CORTIFOAM [Suspect]
     Active Substance: HYDROCORTISONE ACETATE
     Route: 065
  205. CORTIFOAM [Suspect]
     Active Substance: HYDROCORTISONE ACETATE
     Dosage: 1 DF, QD
     Route: 048
  206. CORTIFOAM [Suspect]
     Active Substance: HYDROCORTISONE ACETATE
     Dosage: 1 DF, QD
     Route: 048
  207. CORTIFOAM [Suspect]
     Active Substance: HYDROCORTISONE ACETATE
     Dosage: 1 DF, QD
     Route: 065
  208. CORTIFOAM [Suspect]
     Active Substance: HYDROCORTISONE ACETATE
     Dosage: 4 DF, QD
     Route: 065
  209. CORTIFOAM [Suspect]
     Active Substance: HYDROCORTISONE ACETATE
     Route: 048
  210. CORTIFOAM [Suspect]
     Active Substance: HYDROCORTISONE ACETATE
     Route: 048
  211. CORTIFOAM [Suspect]
     Active Substance: HYDROCORTISONE ACETATE
     Route: 048
  212. CORTIFOAM [Suspect]
     Active Substance: HYDROCORTISONE ACETATE
     Route: 048
  213. CORTIFOAM [Suspect]
     Active Substance: HYDROCORTISONE ACETATE
     Indication: Colitis ulcerative
     Route: 048
  214. CORTIFOAM [Suspect]
     Active Substance: HYDROCORTISONE ACETATE
     Dosage: UNK, QD
     Route: 065
  215. CORTIFOAM [Suspect]
     Active Substance: HYDROCORTISONE ACETATE
     Indication: Deep vein thrombosis
     Route: 065
  216. CORTIFOAM [Suspect]
     Active Substance: HYDROCORTISONE ACETATE
     Route: 065
  217. CORTIFOAM [Suspect]
     Active Substance: HYDROCORTISONE ACETATE
     Route: 065
  218. CORTIFOAM [Suspect]
     Active Substance: HYDROCORTISONE ACETATE
     Route: 065
  219. CORTIFOAM [Suspect]
     Active Substance: HYDROCORTISONE ACETATE
     Route: 065
  220. CORTIFOAM [Suspect]
     Active Substance: HYDROCORTISONE ACETATE
     Route: 065
  221. CORTIFOAM [Suspect]
     Active Substance: HYDROCORTISONE ACETATE
     Route: 065
  222. CORTIFOAM [Suspect]
     Active Substance: HYDROCORTISONE ACETATE
     Route: 065
  223. CORTIFOAM [Suspect]
     Active Substance: HYDROCORTISONE ACETATE
     Route: 065
  224. CORTIFOAM [Suspect]
     Active Substance: HYDROCORTISONE ACETATE
     Route: 065
  225. CORTIFOAM [Suspect]
     Active Substance: HYDROCORTISONE ACETATE
     Route: 048
  226. CORTIFOAM [Suspect]
     Active Substance: HYDROCORTISONE ACETATE
     Indication: Colitis ulcerative
     Route: 065
  227. HYDROCORTISONE ACETATE [Suspect]
     Active Substance: HYDROCORTISONE ACETATE
     Route: 048
  228. HYDROCORTISONE ACETATE [Suspect]
     Active Substance: HYDROCORTISONE ACETATE
     Route: 048
  229. HYDROCORTISONE ACETATE [Suspect]
     Active Substance: HYDROCORTISONE ACETATE
     Route: 048
  230. HYDROCORTISONE ACETATE [Suspect]
     Active Substance: HYDROCORTISONE ACETATE
     Route: 048
  231. HYDROCORTISONE ACETATE [Suspect]
     Active Substance: HYDROCORTISONE ACETATE
     Route: 048
  232. HYDROCORTISONE ACETATE [Suspect]
     Active Substance: HYDROCORTISONE ACETATE
     Route: 048
  233. HYDROCORTISONE ACETATE [Suspect]
     Active Substance: HYDROCORTISONE ACETATE
     Route: 048
  234. HYDROCORTISONE ACETATE [Suspect]
     Active Substance: HYDROCORTISONE ACETATE
     Route: 048
  235. HYDROCORTISONE ACETATE [Suspect]
     Active Substance: HYDROCORTISONE ACETATE
     Indication: Crohn^s disease
     Route: 048
  236. HYDROCORTISONE ACETATE [Suspect]
     Active Substance: HYDROCORTISONE ACETATE
     Route: 048
  237. HYDROCORTISONE ACETATE [Suspect]
     Active Substance: HYDROCORTISONE ACETATE
     Route: 048
  238. HYDROCORTISONE ACETATE [Suspect]
     Active Substance: HYDROCORTISONE ACETATE
     Route: 048
  239. HYDROCORTISONE ACETATE [Suspect]
     Active Substance: HYDROCORTISONE ACETATE
     Route: 048
  240. HYDROCORTISONE ACETATE [Suspect]
     Active Substance: HYDROCORTISONE ACETATE
     Route: 048
  241. HYDROCORTISONE ACETATE [Suspect]
     Active Substance: HYDROCORTISONE ACETATE
     Route: 048
  242. HYDROCORTISONE ACETATE [Suspect]
     Active Substance: HYDROCORTISONE ACETATE
     Route: 048
  243. HYDROCORTISONE ACETATE [Suspect]
     Active Substance: HYDROCORTISONE ACETATE
     Route: 048
  244. HYDROCORTISONE ACETATE [Suspect]
     Active Substance: HYDROCORTISONE ACETATE
     Route: 048
  245. HYDROCORTISONE ACETATE [Suspect]
     Active Substance: HYDROCORTISONE ACETATE
     Indication: Colitis ulcerative
     Route: 065
  246. HYDROCORTISONE ACETATE [Suspect]
     Active Substance: HYDROCORTISONE ACETATE
     Route: 048
  247. HYDROCORTISONE ACETATE [Suspect]
     Active Substance: HYDROCORTISONE ACETATE
     Route: 048
  248. HYDROCORTISONE ACETATE [Suspect]
     Active Substance: HYDROCORTISONE ACETATE
     Route: 048
  249. HYDROCORTISONE ACETATE [Suspect]
     Active Substance: HYDROCORTISONE ACETATE
     Route: 048
  250. HYDROCORTISONE ACETATE [Suspect]
     Active Substance: HYDROCORTISONE ACETATE
     Route: 048
  251. HYDROCORTISONE ACETATE [Suspect]
     Active Substance: HYDROCORTISONE ACETATE
     Route: 048
  252. HYDROCORTISONE ACETATE [Suspect]
     Active Substance: HYDROCORTISONE ACETATE
     Route: 048
  253. HYDROCORTISONE ACETATE [Suspect]
     Active Substance: HYDROCORTISONE ACETATE
     Route: 048
  254. HYDROCORTISONE ACETATE [Suspect]
     Active Substance: HYDROCORTISONE ACETATE
     Route: 048
  255. HYDROCORTISONE ACETATE [Suspect]
     Active Substance: HYDROCORTISONE ACETATE
     Route: 048
  256. HYDROCORTISONE ACETATE [Suspect]
     Active Substance: HYDROCORTISONE ACETATE
     Route: 048
  257. HYDROCORTISONE ACETATE [Suspect]
     Active Substance: HYDROCORTISONE ACETATE
     Route: 048
  258. CORTISONE [Suspect]
     Active Substance: CORTISONE
     Route: 065
  259. CORTISONE [Suspect]
     Active Substance: CORTISONE
     Route: 065
  260. CORTISONE [Suspect]
     Active Substance: CORTISONE
     Dosage: 6 DF, QW
     Route: 065
  261. CORTISONE [Suspect]
     Active Substance: CORTISONE
     Dosage: 6 DF, QW
     Route: 065
  262. CORTISONE [Suspect]
     Active Substance: CORTISONE
     Dosage: 8 MG, QW
     Route: 065
  263. CORTISONE [Suspect]
     Active Substance: CORTISONE
     Dosage: 8 MG, QW
     Route: 065
  264. CORTISONE [Suspect]
     Active Substance: CORTISONE
     Dosage: 8 MG, QW
     Route: 065
  265. CORTISONE [Suspect]
     Active Substance: CORTISONE
     Dosage: 8 MG, QW
     Route: 065
  266. CORTISONE [Suspect]
     Active Substance: CORTISONE
     Dosage: 8 MG, QW
     Route: 065
  267. CORTISONE [Suspect]
     Active Substance: CORTISONE
     Dosage: 8 MG, QW
     Route: 065
  268. CORTISONE [Suspect]
     Active Substance: CORTISONE
     Dosage: 8 MG, QW
     Route: 065
  269. CORTISONE [Suspect]
     Active Substance: CORTISONE
     Dosage: 8 MG, QW
     Route: 065
  270. CORTISONE [Suspect]
     Active Substance: CORTISONE
     Indication: Colitis ulcerative
     Route: 065
  271. CORTISONE [Suspect]
     Active Substance: CORTISONE
     Route: 065
  272. CORTISONE [Suspect]
     Active Substance: CORTISONE
     Route: 065
  273. CORTISONE [Suspect]
     Active Substance: CORTISONE
     Indication: Crohn^s disease
     Route: 065
  274. DAPAGLIFLOZIN [Suspect]
     Active Substance: DAPAGLIFLOZIN
     Indication: Cardiac failure chronic
     Route: 065
  275. DAPAGLIFLOZIN [Suspect]
     Active Substance: DAPAGLIFLOZIN
     Indication: Ill-defined disorder
     Route: 065
  276. DESOXIMETASONE [Suspect]
     Active Substance: DESOXIMETASONE
     Indication: Colitis ulcerative
     Dosage: 1 DF, QD
     Route: 065
  277. DESOXIMETASONE [Suspect]
     Active Substance: DESOXIMETASONE
     Route: 048
  278. DESOXIMETASONE [Suspect]
     Active Substance: DESOXIMETASONE
     Dosage: 3 DF, BID
     Route: 048
  279. DESOXIMETASONE [Suspect]
     Active Substance: DESOXIMETASONE
     Route: 048
  280. DESOXIMETASONE [Suspect]
     Active Substance: DESOXIMETASONE
     Route: 065
  281. DESOXIMETASONE [Suspect]
     Active Substance: DESOXIMETASONE
     Route: 065
  282. DESOXIMETASONE [Suspect]
     Active Substance: DESOXIMETASONE
     Dosage: 8 DF, QD
     Route: 048
  283. DESOXIMETASONE [Suspect]
     Active Substance: DESOXIMETASONE
     Dosage: 8 DF, QD
     Route: 048
  284. DESOXIMETASONE [Suspect]
     Active Substance: DESOXIMETASONE
     Route: 048
  285. DESOXIMETASONE [Suspect]
     Active Substance: DESOXIMETASONE
     Route: 048
  286. DESOXIMETASONE [Suspect]
     Active Substance: DESOXIMETASONE
     Route: 048
  287. DESOXIMETASONE [Suspect]
     Active Substance: DESOXIMETASONE
     Route: 048
  288. DESOXIMETASONE [Suspect]
     Active Substance: DESOXIMETASONE
     Route: 048
  289. DESOXIMETASONE [Suspect]
     Active Substance: DESOXIMETASONE
     Route: 048
  290. DESOXIMETASONE [Suspect]
     Active Substance: DESOXIMETASONE
     Indication: Crohn^s disease
     Route: 065
  291. ESCITALOPRAM [Suspect]
     Active Substance: ESCITALOPRAM OXALATE
     Indication: Product used for unknown indication
     Dosage: 10 MG, QD
     Route: 065
  292. ESOMEPRAZOLE [Suspect]
     Active Substance: ESOMEPRAZOLE
     Indication: Gastritis
     Route: 065
  293. ENTYVIO [Suspect]
     Active Substance: VEDOLIZUMAB
     Dosage: 1 DF 1 EVERY 1 DAYS
     Route: 048
  294. ENTYVIO [Suspect]
     Active Substance: VEDOLIZUMAB
     Dosage: 1 DF 1 EVERY 1 DAYS
     Route: 048
  295. ENTYVIO [Suspect]
     Active Substance: VEDOLIZUMAB
     Dosage: 1 DF 1 EVERY 1 DAYS
     Route: 048
  296. ENTYVIO [Suspect]
     Active Substance: VEDOLIZUMAB
     Dosage: 1 DF 1 EVERY 1 DAYS
     Route: 048
  297. ENTYVIO [Suspect]
     Active Substance: VEDOLIZUMAB
     Dosage: 1 DF 1 EVERY 1 DAYS
     Route: 048
  298. ENTYVIO [Suspect]
     Active Substance: VEDOLIZUMAB
     Dosage: 1 DF 1 EVERY 1 DAYS
     Route: 048
  299. ENTYVIO [Suspect]
     Active Substance: VEDOLIZUMAB
     Dosage: 1 DF 1 EVERY 1 DAYS
     Route: 048
  300. ENTYVIO [Suspect]
     Active Substance: VEDOLIZUMAB
     Dosage: 1 DF 1 EVERY 1 DAYS
     Route: 048
  301. ENTYVIO [Suspect]
     Active Substance: VEDOLIZUMAB
     Dosage: 1 DF 1 EVERY 1 DAYS
     Route: 048
  302. ENTYVIO [Suspect]
     Active Substance: VEDOLIZUMAB
     Dosage: 1 DF 1 EVERY 1 DAYS
     Route: 048
  303. ENTYVIO [Suspect]
     Active Substance: VEDOLIZUMAB
     Dosage: 1 DF, 1 EVERY 1 DAY
     Route: 065
  304. ENTYVIO [Suspect]
     Active Substance: VEDOLIZUMAB
     Indication: Colitis ulcerative
     Route: 065
  305. ENTYVIO [Suspect]
     Active Substance: VEDOLIZUMAB
     Indication: Deep vein thrombosis
     Route: 042
  306. ENTYVIO [Suspect]
     Active Substance: VEDOLIZUMAB
     Route: 042
  307. ENTYVIO [Suspect]
     Active Substance: VEDOLIZUMAB
     Route: 048
  308. ENTYVIO [Suspect]
     Active Substance: VEDOLIZUMAB
     Indication: Product used for unknown indication
     Route: 042
  309. ENTYVIO [Suspect]
     Active Substance: VEDOLIZUMAB
     Route: 042
  310. ENTYVIO [Suspect]
     Active Substance: VEDOLIZUMAB
     Route: 042
  311. ENTYVIO [Suspect]
     Active Substance: VEDOLIZUMAB
     Route: 042
  312. ENTYVIO [Suspect]
     Active Substance: VEDOLIZUMAB
     Route: 042
  313. ENTYVIO [Suspect]
     Active Substance: VEDOLIZUMAB
     Route: 042
  314. ENTYVIO [Suspect]
     Active Substance: VEDOLIZUMAB
     Route: 042
  315. ENTYVIO [Suspect]
     Active Substance: VEDOLIZUMAB
     Route: 042
  316. ENTYVIO [Suspect]
     Active Substance: VEDOLIZUMAB
     Route: 042
  317. ENTYVIO [Suspect]
     Active Substance: VEDOLIZUMAB
     Route: 042
  318. ENTYVIO [Suspect]
     Active Substance: VEDOLIZUMAB
     Route: 042
  319. ENTYVIO [Suspect]
     Active Substance: VEDOLIZUMAB
     Route: 042
  320. ENTYVIO [Suspect]
     Active Substance: VEDOLIZUMAB
     Route: 042
  321. ENTYVIO [Suspect]
     Active Substance: VEDOLIZUMAB
     Route: 042
  322. ENTYVIO [Suspect]
     Active Substance: VEDOLIZUMAB
     Route: 042
  323. ENTYVIO [Suspect]
     Active Substance: VEDOLIZUMAB
     Route: 042
  324. ENTYVIO [Suspect]
     Active Substance: VEDOLIZUMAB
     Route: 042
  325. ENTYVIO [Suspect]
     Active Substance: VEDOLIZUMAB
     Route: 042
  326. ENTYVIO [Suspect]
     Active Substance: VEDOLIZUMAB
     Route: 042
  327. ENTYVIO [Suspect]
     Active Substance: VEDOLIZUMAB
     Route: 042
  328. ENTYVIO [Suspect]
     Active Substance: VEDOLIZUMAB
     Route: 042
  329. ENTYVIO [Suspect]
     Active Substance: VEDOLIZUMAB
     Route: 042
  330. ENTYVIO [Suspect]
     Active Substance: VEDOLIZUMAB
     Route: 042
  331. ENTYVIO [Suspect]
     Active Substance: VEDOLIZUMAB
     Route: 042
  332. ENTYVIO [Suspect]
     Active Substance: VEDOLIZUMAB
     Route: 042
  333. ENTYVIO [Suspect]
     Active Substance: VEDOLIZUMAB
     Route: 042
  334. ENTYVIO [Suspect]
     Active Substance: VEDOLIZUMAB
     Route: 042
  335. ENTYVIO [Suspect]
     Active Substance: VEDOLIZUMAB
     Route: 042
  336. ENTYVIO [Suspect]
     Active Substance: VEDOLIZUMAB
     Route: 042
  337. ENTYVIO [Suspect]
     Active Substance: VEDOLIZUMAB
     Route: 042
  338. ENTYVIO [Suspect]
     Active Substance: VEDOLIZUMAB
     Route: 042
  339. ENTYVIO [Suspect]
     Active Substance: VEDOLIZUMAB
     Route: 042
  340. ENTYVIO [Suspect]
     Active Substance: VEDOLIZUMAB
     Route: 042
  341. ENTYVIO [Suspect]
     Active Substance: VEDOLIZUMAB
     Route: 042
  342. ENTYVIO [Suspect]
     Active Substance: VEDOLIZUMAB
     Route: 065
  343. EPINEPHRINE [Suspect]
     Active Substance: EPINEPHRINE
     Indication: Product used for unknown indication
     Route: 065
  344. EPINEPHRINE [Suspect]
     Active Substance: EPINEPHRINE
     Route: 065
  345. EPINEPHRINE [Suspect]
     Active Substance: EPINEPHRINE
     Route: 065
  346. FELODIPINE [Suspect]
     Active Substance: FELODIPINE
     Indication: Hypertension
     Dosage: 2.5 MG, BID
     Route: 048
  347. FUROSEMIDE [Suspect]
     Active Substance: FUROSEMIDE
     Indication: Product used for unknown indication
     Dosage: 20 MG, QD
     Route: 065
  348. GABAPENTIN [Suspect]
     Active Substance: GABAPENTIN
     Indication: Product used for unknown indication
     Dosage: 300 MG, TID
     Route: 065
  349. HYDROCORTISONE [Suspect]
     Active Substance: HYDROCORTISONE
     Dosage: 1 DF, QD
     Route: 048
  350. HYDROCORTISONE [Suspect]
     Active Substance: HYDROCORTISONE
     Dosage: 1 DF, QD
     Route: 048
  351. HYDROCORTISONE [Suspect]
     Active Substance: HYDROCORTISONE
     Dosage: 1 DF, QD
     Route: 065
  352. HYDROCORTISONE [Suspect]
     Active Substance: HYDROCORTISONE
     Indication: Colitis ulcerative
     Dosage: 3 DF, BID
     Route: 048
  353. HYDROCORTISONE [Suspect]
     Active Substance: HYDROCORTISONE
     Dosage: 6 DF, QD
     Route: 048
  354. HYDROCORTISONE [Suspect]
     Active Substance: HYDROCORTISONE
     Dosage: 6 DF, QD
     Route: 048
  355. HYDROCORTISONE [Suspect]
     Active Substance: HYDROCORTISONE
     Route: 048
  356. HYDROCORTISONE [Suspect]
     Active Substance: HYDROCORTISONE
     Route: 048
  357. HYDROCORTISONE [Suspect]
     Active Substance: HYDROCORTISONE
     Route: 048
  358. HYDROCORTISONE [Suspect]
     Active Substance: HYDROCORTISONE
     Route: 048
  359. HYDROCORTISONE [Suspect]
     Active Substance: HYDROCORTISONE
     Route: 048
  360. HYDROCORTISONE [Suspect]
     Active Substance: HYDROCORTISONE
     Route: 048
  361. HYDROCORTISONE [Suspect]
     Active Substance: HYDROCORTISONE
     Route: 048
  362. HYDROCORTISONE [Suspect]
     Active Substance: HYDROCORTISONE
     Route: 048
  363. HYDROCORTISONE [Suspect]
     Active Substance: HYDROCORTISONE
     Route: 048
  364. HYDROCORTISONE [Suspect]
     Active Substance: HYDROCORTISONE
     Route: 048
  365. HYDROCORTISONE [Suspect]
     Active Substance: HYDROCORTISONE
     Route: 048
  366. HYDROCORTISONE [Suspect]
     Active Substance: HYDROCORTISONE
     Route: 048
  367. HYDROCORTISONE [Suspect]
     Active Substance: HYDROCORTISONE
     Dosage: UNK, QD
     Route: 048
  368. HYDROCORTISONE [Suspect]
     Active Substance: HYDROCORTISONE
     Route: 048
  369. HYDROCORTISONE [Suspect]
     Active Substance: HYDROCORTISONE
     Route: 048
  370. HUMIRA [Suspect]
     Active Substance: ADALIMUMAB
     Route: 048
  371. HUMIRA [Suspect]
     Active Substance: ADALIMUMAB
     Route: 058
  372. HUMIRA [Suspect]
     Active Substance: ADALIMUMAB
     Route: 065
  373. HUMIRA [Suspect]
     Active Substance: ADALIMUMAB
     Route: 048
  374. HUMIRA [Suspect]
     Active Substance: ADALIMUMAB
     Indication: Crohn^s disease
     Route: 058
  375. HUMIRA [Suspect]
     Active Substance: ADALIMUMAB
     Indication: Deep vein thrombosis
     Route: 065
  376. HUMIRA [Suspect]
     Active Substance: ADALIMUMAB
     Route: 065
  377. INFLECTRA [Suspect]
     Active Substance: INFLIXIMAB-DYYB
     Route: 042
  378. INFLECTRA [Suspect]
     Active Substance: INFLIXIMAB-DYYB
     Route: 042
  379. INFLECTRA [Suspect]
     Active Substance: INFLIXIMAB-DYYB
     Indication: Crohn^s disease
     Route: 065
  380. INFLECTRA [Suspect]
     Active Substance: INFLIXIMAB-DYYB
     Route: 042
  381. INFLECTRA [Suspect]
     Active Substance: INFLIXIMAB-DYYB
     Route: 042
  382. INFLECTRA [Suspect]
     Active Substance: INFLIXIMAB-DYYB
     Route: 042
  383. INFLECTRA [Suspect]
     Active Substance: INFLIXIMAB-DYYB
     Route: 042
  384. INFLECTRA [Suspect]
     Active Substance: INFLIXIMAB-DYYB
     Route: 042
  385. INFLECTRA [Suspect]
     Active Substance: INFLIXIMAB-DYYB
     Route: 048
  386. INFLECTRA [Suspect]
     Active Substance: INFLIXIMAB-DYYB
     Route: 048
  387. INFLECTRA [Suspect]
     Active Substance: INFLIXIMAB-DYYB
     Route: 048
  388. INFLECTRA [Suspect]
     Active Substance: INFLIXIMAB-DYYB
     Route: 048
  389. INFLECTRA [Suspect]
     Active Substance: INFLIXIMAB-DYYB
     Indication: Colitis ulcerative
     Route: 065
  390. INFLECTRA [Suspect]
     Active Substance: INFLIXIMAB-DYYB
     Route: 065
  391. INFLECTRA [Suspect]
     Active Substance: INFLIXIMAB-DYYB
     Route: 065
  392. INFLECTRA [Suspect]
     Active Substance: INFLIXIMAB-DYYB
     Route: 065
  393. INFLECTRA [Suspect]
     Active Substance: INFLIXIMAB-DYYB
     Route: 065
  394. INFLIXIMAB [Suspect]
     Active Substance: INFLIXIMAB
     Dosage: 12 MG, QW
     Route: 042
  395. INFLIXIMAB [Suspect]
     Active Substance: INFLIXIMAB
     Dosage: 12 MG, QW
     Route: 042
  396. INFLIXIMAB [Suspect]
     Active Substance: INFLIXIMAB
     Dosage: 12 MG, QW
     Route: 042
  397. INFLIXIMAB [Suspect]
     Active Substance: INFLIXIMAB
     Dosage: 12 MG, QW
     Route: 042
  398. INFLIXIMAB [Suspect]
     Active Substance: INFLIXIMAB
     Dosage: 12 MG, QW
     Route: 042
  399. INFLIXIMAB [Suspect]
     Active Substance: INFLIXIMAB
     Dosage: 12 MG, QW
     Route: 042
  400. INFLIXIMAB [Suspect]
     Active Substance: INFLIXIMAB
     Dosage: 12 MG, QW
     Route: 042
  401. INFLIXIMAB [Suspect]
     Active Substance: INFLIXIMAB
     Dosage: 12 MG, QW
     Route: 042
  402. INFLIXIMAB [Suspect]
     Active Substance: INFLIXIMAB
     Dosage: 12 MG, QW
     Route: 042
  403. INFLIXIMAB [Suspect]
     Active Substance: INFLIXIMAB
     Dosage: 12 MG, QW
     Route: 042
  404. INFLIXIMAB [Suspect]
     Active Substance: INFLIXIMAB
     Dosage: 12 MG, QW
     Route: 042
  405. INFLIXIMAB [Suspect]
     Active Substance: INFLIXIMAB
     Dosage: 12 MG, QW
     Route: 042
  406. INFLIXIMAB [Suspect]
     Active Substance: INFLIXIMAB
     Route: 042
  407. INFLIXIMAB [Suspect]
     Active Substance: INFLIXIMAB
     Route: 042
  408. INFLIXIMAB [Suspect]
     Active Substance: INFLIXIMAB
     Route: 042
  409. INFLIXIMAB [Suspect]
     Active Substance: INFLIXIMAB
     Route: 042
  410. INFLIXIMAB [Suspect]
     Active Substance: INFLIXIMAB
     Route: 042
  411. INFLIXIMAB [Suspect]
     Active Substance: INFLIXIMAB
     Route: 042
  412. INFLIXIMAB [Suspect]
     Active Substance: INFLIXIMAB
     Dosage: 5 MG/KG
     Route: 042
  413. INFLIXIMAB [Suspect]
     Active Substance: INFLIXIMAB
     Dosage: 5 MG/KG
     Route: 042
  414. INFLIXIMAB [Suspect]
     Active Substance: INFLIXIMAB
     Dosage: 5 MG/KG
     Route: 042
  415. INFLIXIMAB [Suspect]
     Active Substance: INFLIXIMAB
     Dosage: 5 MG/KG
     Route: 042
  416. INFLIXIMAB [Suspect]
     Active Substance: INFLIXIMAB
     Dosage: 5 MG/KG
     Route: 042
  417. INFLIXIMAB [Suspect]
     Active Substance: INFLIXIMAB
     Dosage: 5 MG/KG
     Route: 042
  418. INFLIXIMAB [Suspect]
     Active Substance: INFLIXIMAB
     Dosage: 5 MG/KG
     Route: 042
  419. INFLIXIMAB [Suspect]
     Active Substance: INFLIXIMAB
     Dosage: 5 MG/KG
     Route: 042
  420. INFLIXIMAB [Suspect]
     Active Substance: INFLIXIMAB
     Dosage: 5 MG/KG
     Route: 042
  421. INFLIXIMAB [Suspect]
     Active Substance: INFLIXIMAB
     Dosage: 5 MG/KG
     Route: 042
  422. INFLIXIMAB [Suspect]
     Active Substance: INFLIXIMAB
     Dosage: 5 MG/KG
     Route: 042
  423. INFLIXIMAB [Suspect]
     Active Substance: INFLIXIMAB
     Dosage: 5 MG/KG
     Route: 042
  424. INFLIXIMAB [Suspect]
     Active Substance: INFLIXIMAB
     Dosage: 5 MG/KG
     Route: 042
  425. INFLIXIMAB [Suspect]
     Active Substance: INFLIXIMAB
     Dosage: 5 MG/KG
     Route: 042
  426. INFLIXIMAB [Suspect]
     Active Substance: INFLIXIMAB
     Dosage: 5 MG/KG
     Route: 042
  427. INFLIXIMAB [Suspect]
     Active Substance: INFLIXIMAB
     Indication: Colitis ulcerative
     Route: 065
  428. INFLIXIMAB [Suspect]
     Active Substance: INFLIXIMAB
     Route: 042
  429. INFLIXIMAB [Suspect]
     Active Substance: INFLIXIMAB
     Route: 042
  430. INFLIXIMAB [Suspect]
     Active Substance: INFLIXIMAB
     Route: 042
  431. INFLIXIMAB [Suspect]
     Active Substance: INFLIXIMAB
     Route: 042
  432. INFLIXIMAB [Suspect]
     Active Substance: INFLIXIMAB
     Route: 042
  433. INFLIXIMAB [Suspect]
     Active Substance: INFLIXIMAB
     Route: 042
  434. INFLIXIMAB [Suspect]
     Active Substance: INFLIXIMAB
     Route: 042
  435. INFLIXIMAB [Suspect]
     Active Substance: INFLIXIMAB
     Route: 042
  436. INFLIXIMAB [Suspect]
     Active Substance: INFLIXIMAB
     Route: 042
  437. INFLIXIMAB [Suspect]
     Active Substance: INFLIXIMAB
     Route: 042
  438. INFLIXIMAB [Suspect]
     Active Substance: INFLIXIMAB
     Route: 042
  439. INFLIXIMAB [Suspect]
     Active Substance: INFLIXIMAB
     Route: 042
  440. INFLIXIMAB [Suspect]
     Active Substance: INFLIXIMAB
     Route: 042
  441. INFLIXIMAB [Suspect]
     Active Substance: INFLIXIMAB
     Route: 042
  442. INFLIXIMAB [Suspect]
     Active Substance: INFLIXIMAB
     Route: 042
  443. INFLIXIMAB [Suspect]
     Active Substance: INFLIXIMAB
     Indication: Crohn^s disease
     Route: 065
  444. LEVOTHYROXINE SODIUM [Suspect]
     Active Substance: LEVOTHYROXINE SODIUM
     Indication: Product used for unknown indication
     Dosage: 100 MG, QD
     Route: 065
  445. LISDEXAMFETAMINE DIMESYLATE [Suspect]
     Active Substance: LISDEXAMFETAMINE DIMESYLATE
     Indication: Product used for unknown indication
     Route: 065
  446. MESALAMINE [Suspect]
     Active Substance: MESALAMINE
     Dosage: 1 DF, QD
     Route: 065
  447. MESALAMINE [Suspect]
     Active Substance: MESALAMINE
     Dosage: 12 DF, QD
     Route: 065
  448. MESALAMINE [Suspect]
     Active Substance: MESALAMINE
     Dosage: 2.4 G, QD
     Route: 065
  449. MESALAMINE [Suspect]
     Active Substance: MESALAMINE
     Dosage: 3 G, QD
     Route: 065
  450. MESALAMINE [Suspect]
     Active Substance: MESALAMINE
     Dosage: 30 DF, BID
     Route: 065
  451. MESALAMINE [Suspect]
     Active Substance: MESALAMINE
     Dosage: 4.8 G, QD
     Route: 065
  452. MESALAMINE [Suspect]
     Active Substance: MESALAMINE
     Dosage: 4.8 MG, QD
     Route: 065
  453. MESALAMINE [Suspect]
     Active Substance: MESALAMINE
     Indication: Colitis ulcerative
     Route: 048
  454. MESALAMINE [Suspect]
     Active Substance: MESALAMINE
     Route: 048
  455. MESALAMINE [Suspect]
     Active Substance: MESALAMINE
     Route: 065
  456. MESALAMINE [Suspect]
     Active Substance: MESALAMINE
     Route: 065
  457. MESALAMINE [Suspect]
     Active Substance: MESALAMINE
     Route: 065
  458. MESALAMINE [Suspect]
     Active Substance: MESALAMINE
     Dosage: 6 DF, QD
     Route: 048
  459. MESALAMINE [Suspect]
     Active Substance: MESALAMINE
     Dosage: 6 DF, QD
     Route: 048
  460. MESALAMINE [Suspect]
     Active Substance: MESALAMINE
     Dosage: 6 DF, QD
     Route: 048
  461. MESALAMINE [Suspect]
     Active Substance: MESALAMINE
     Route: 048
  462. MESALAMINE [Suspect]
     Active Substance: MESALAMINE
     Dosage: 4.8 UNK, QD
     Route: 065
  463. MESALAMINE [Suspect]
     Active Substance: MESALAMINE
     Route: 048
  464. MESALAMINE [Suspect]
     Active Substance: MESALAMINE
     Route: 048
  465. MESALAMINE [Suspect]
     Active Substance: MESALAMINE
     Route: 048
  466. MESALAMINE [Suspect]
     Active Substance: MESALAMINE
     Route: 065
  467. MESALAMINE [Suspect]
     Active Substance: MESALAMINE
     Route: 065
  468. MESALAMINE [Suspect]
     Active Substance: MESALAMINE
     Route: 065
  469. MESALAMINE [Suspect]
     Active Substance: MESALAMINE
     Route: 065
  470. MESALAMINE [Suspect]
     Active Substance: MESALAMINE
     Route: 065
  471. MESALAMINE [Suspect]
     Active Substance: MESALAMINE
     Route: 065
  472. MESALAMINE [Suspect]
     Active Substance: MESALAMINE
     Route: 065
  473. MESALAMINE [Suspect]
     Active Substance: MESALAMINE
     Route: 065
  474. MESALAMINE [Suspect]
     Active Substance: MESALAMINE
     Route: 065
  475. MESALAMINE [Suspect]
     Active Substance: MESALAMINE
     Route: 065
  476. MESALAMINE [Suspect]
     Active Substance: MESALAMINE
     Route: 065
  477. MESALAMINE [Suspect]
     Active Substance: MESALAMINE
     Route: 065
  478. MESALAMINE [Suspect]
     Active Substance: MESALAMINE
     Route: 065
  479. MESALAMINE [Suspect]
     Active Substance: MESALAMINE
     Route: 065
  480. MEBEVERINE [Suspect]
     Active Substance: MEBEVERINE
     Indication: Product used for unknown indication
     Route: 065
  481. MESALAMINE [Suspect]
     Active Substance: MESALAMINE
     Indication: Colitis ulcerative
     Route: 065
  482. MESALAMINE [Suspect]
     Active Substance: MESALAMINE
     Route: 065
  483. MESALAMINE [Suspect]
     Active Substance: MESALAMINE
     Route: 065
  484. MESALAMINE [Suspect]
     Active Substance: MESALAMINE
     Route: 065
  485. MESALAMINE [Suspect]
     Active Substance: MESALAMINE
     Route: 065
  486. MESALAMINE [Suspect]
     Active Substance: MESALAMINE
     Route: 065
  487. MESALAMINE [Suspect]
     Active Substance: MESALAMINE
     Route: 065
  488. MESALAMINE [Suspect]
     Active Substance: MESALAMINE
     Route: 065
  489. MESALAMINE [Suspect]
     Active Substance: MESALAMINE
     Route: 065
  490. MESALAMINE [Suspect]
     Active Substance: MESALAMINE
     Dosage: 4.8 MG, QD
     Route: 048
  491. MESALAMINE [Suspect]
     Active Substance: MESALAMINE
     Route: 048
  492. MESALAMINE [Suspect]
     Active Substance: MESALAMINE
     Route: 048
  493. MESALAMINE [Suspect]
     Active Substance: MESALAMINE
     Route: 065
  494. MESALAMINE [Suspect]
     Active Substance: MESALAMINE
     Route: 065
  495. MESALAMINE [Suspect]
     Active Substance: MESALAMINE
     Route: 065
  496. MESALAMINE [Suspect]
     Active Substance: MESALAMINE
     Route: 065
  497. MESALAMINE [Suspect]
     Active Substance: MESALAMINE
     Route: 065
  498. MESALAMINE [Suspect]
     Active Substance: MESALAMINE
     Route: 048
  499. MESALAMINE [Suspect]
     Active Substance: MESALAMINE
     Route: 065
  500. MESALAMINE [Suspect]
     Active Substance: MESALAMINE
     Route: 065
  501. MESALAMINE [Suspect]
     Active Substance: MESALAMINE
     Route: 065
  502. MESALAMINE [Suspect]
     Active Substance: MESALAMINE
     Route: 065
  503. MESALAMINE [Suspect]
     Active Substance: MESALAMINE
     Route: 065
  504. MESALAMINE [Suspect]
     Active Substance: MESALAMINE
     Route: 048
  505. MESALAMINE [Suspect]
     Active Substance: MESALAMINE
     Route: 065
  506. MESALAMINE [Suspect]
     Active Substance: MESALAMINE
     Route: 048
  507. MESALAMINE [Suspect]
     Active Substance: MESALAMINE
     Route: 048
  508. MESALAMINE [Suspect]
     Active Substance: MESALAMINE
     Route: 048
  509. MESALAMINE [Suspect]
     Active Substance: MESALAMINE
     Route: 048
  510. MESALAMINE [Suspect]
     Active Substance: MESALAMINE
     Route: 065
  511. MESALAMINE [Suspect]
     Active Substance: MESALAMINE
     Route: 065
  512. MESALAMINE [Suspect]
     Active Substance: MESALAMINE
     Route: 065
  513. MESALAMINE [Suspect]
     Active Substance: MESALAMINE
     Route: 065
  514. MESALAMINE [Suspect]
     Active Substance: MESALAMINE
     Route: 065
  515. MESALAMINE [Suspect]
     Active Substance: MESALAMINE
     Route: 065
  516. MESALAMINE [Suspect]
     Active Substance: MESALAMINE
     Route: 065
  517. MESALAMINE [Suspect]
     Active Substance: MESALAMINE
     Route: 065
  518. MESALAMINE [Suspect]
     Active Substance: MESALAMINE
     Route: 065
  519. MESALAMINE [Suspect]
     Active Substance: MESALAMINE
     Route: 065
  520. MESALAMINE [Suspect]
     Active Substance: MESALAMINE
     Route: 065
  521. MESALAMINE [Suspect]
     Active Substance: MESALAMINE
     Route: 065
  522. MESALAMINE [Suspect]
     Active Substance: MESALAMINE
     Route: 065
  523. MESALAMINE [Suspect]
     Active Substance: MESALAMINE
     Route: 065
  524. MESALAMINE [Suspect]
     Active Substance: MESALAMINE
     Route: 065
  525. MESALAMINE [Suspect]
     Active Substance: MESALAMINE
     Route: 065
  526. MESALAMINE [Suspect]
     Active Substance: MESALAMINE
     Route: 065
  527. MESALAMINE [Suspect]
     Active Substance: MESALAMINE
     Route: 065
  528. MESALAMINE [Suspect]
     Active Substance: MESALAMINE
     Route: 065
  529. MESALAMINE [Suspect]
     Active Substance: MESALAMINE
     Route: 065
  530. MESALAMINE [Suspect]
     Active Substance: MESALAMINE
     Route: 065
  531. METFORMIN [Suspect]
     Active Substance: METFORMIN HYDROCHLORIDE
     Route: 065
  532. METFORMIN [Suspect]
     Active Substance: METFORMIN HYDROCHLORIDE
     Indication: Product used for unknown indication
     Route: 065
  533. MINERAL OIL [Suspect]
     Active Substance: MINERAL OIL
     Indication: Ill-defined disorder
     Route: 065
  534. OMEPRAZOLE [Suspect]
     Active Substance: OMEPRAZOLE
     Dosage: 40 MG CAPSULE
     Route: 065
  535. OMEPRAZOLE [Suspect]
     Active Substance: OMEPRAZOLE
     Indication: Gastritis
     Dosage: 20 MG, BID
     Route: 065
  536. OMEPRAZOLE [Suspect]
     Active Substance: OMEPRAZOLE
     Route: 065
  537. OMEPRAZOLE [Suspect]
     Active Substance: OMEPRAZOLE
     Route: 065
  538. OXYCODONE [Suspect]
     Active Substance: OXYCODONE
     Indication: Product used for unknown indication
     Dosage: 5 MG, BID
     Route: 065
  539. PARA-AMINOSALICYLIC ACID [Suspect]
     Active Substance: AMINOSALICYLIC ACID
     Route: 048
  540. PARA-AMINOSALICYLIC ACID [Suspect]
     Active Substance: AMINOSALICYLIC ACID
     Route: 048
  541. PARA-AMINOSALICYLIC ACID [Suspect]
     Active Substance: AMINOSALICYLIC ACID
     Route: 048
  542. PARA-AMINOSALICYLIC ACID [Suspect]
     Active Substance: AMINOSALICYLIC ACID
     Indication: Colitis ulcerative
     Route: 065
  543. PARA-AMINOSALICYLIC ACID [Suspect]
     Active Substance: AMINOSALICYLIC ACID
     Indication: Deep vein thrombosis
     Route: 065
  544. PARA-AMINOSALICYLIC ACID [Suspect]
     Active Substance: AMINOSALICYLIC ACID
     Route: 065
  545. PREDNISONE [Suspect]
     Active Substance: PREDNISONE
     Route: 065
  546. PREDNISONE [Suspect]
     Active Substance: PREDNISONE
     Route: 065
  547. PREDNISONE [Suspect]
     Active Substance: PREDNISONE
     Route: 065
  548. PREDNISONE [Suspect]
     Active Substance: PREDNISONE
     Route: 065
  549. PREDNISONE [Suspect]
     Active Substance: PREDNISONE
     Indication: Colitis ulcerative
     Route: 065
  550. PREDNISONE [Suspect]
     Active Substance: PREDNISONE
     Route: 065
  551. PREDNISONE [Suspect]
     Active Substance: PREDNISONE
     Route: 065
  552. PREDNISONE [Suspect]
     Active Substance: PREDNISONE
     Route: 065
  553. PREDNISONE [Suspect]
     Active Substance: PREDNISONE
     Route: 065
  554. PREDNISONE [Suspect]
     Active Substance: PREDNISONE
     Route: 065
  555. PREDNISONE [Suspect]
     Active Substance: PREDNISONE
     Route: 065
  556. PREDNISONE [Suspect]
     Active Substance: PREDNISONE
     Route: 065
  557. PREDNISONE [Suspect]
     Active Substance: PREDNISONE
     Route: 065
  558. ROSUVASTATIN CALCIUM [Suspect]
     Active Substance: ROSUVASTATIN CALCIUM
     Dosage: 10 MG, QD
     Route: 065
  559. ROSUVASTATIN CALCIUM [Suspect]
     Active Substance: ROSUVASTATIN CALCIUM
     Dosage: 10 MG, QD
     Route: 065
  560. ROSUVASTATIN CALCIUM [Suspect]
     Active Substance: ROSUVASTATIN CALCIUM
     Indication: Blood cholesterol increased
     Route: 065
  561. ROSUVASTATIN CALCIUM [Suspect]
     Active Substance: ROSUVASTATIN CALCIUM
     Indication: Ill-defined disorder
     Route: 065
  562. ROSUVASTATIN CALCIUM [Suspect]
     Active Substance: ROSUVASTATIN CALCIUM
     Route: 065
  563. ROSUVASTATIN CALCIUM [Suspect]
     Active Substance: ROSUVASTATIN CALCIUM
     Route: 065
  564. REMICADE [Suspect]
     Active Substance: INFLIXIMAB
     Indication: Crohn^s disease
     Route: 041
  565. REMICADE [Suspect]
     Active Substance: INFLIXIMAB
     Route: 041
  566. REMICADE [Suspect]
     Active Substance: INFLIXIMAB
     Route: 065
  567. REMICADE [Suspect]
     Active Substance: INFLIXIMAB
     Route: 065
  568. REMICADE [Suspect]
     Active Substance: INFLIXIMAB
     Indication: Colitis ulcerative
     Route: 041
  569. REMICADE [Suspect]
     Active Substance: INFLIXIMAB
     Route: 041
  570. REMICADE [Suspect]
     Active Substance: INFLIXIMAB
     Route: 041
  571. REMICADE [Suspect]
     Active Substance: INFLIXIMAB
     Route: 041
  572. MESALAMINE [Suspect]
     Active Substance: MESALAMINE
     Indication: Product used for unknown indication
     Route: 065
  573. SULFASALAZINE [Suspect]
     Active Substance: SULFASALAZINE
     Route: 048
  574. SULFASALAZINE [Suspect]
     Active Substance: SULFASALAZINE
     Route: 048
  575. SULFASALAZINE [Suspect]
     Active Substance: SULFASALAZINE
     Dosage: 3 DF, QD
     Route: 048
  576. SULFASALAZINE [Suspect]
     Active Substance: SULFASALAZINE
     Route: 048
  577. SULFASALAZINE [Suspect]
     Active Substance: SULFASALAZINE
     Route: 048
  578. SULFASALAZINE [Suspect]
     Active Substance: SULFASALAZINE
     Route: 048
  579. SULFASALAZINE [Suspect]
     Active Substance: SULFASALAZINE
     Route: 048
  580. SULFASALAZINE [Suspect]
     Active Substance: SULFASALAZINE
     Indication: Arthritis
     Route: 065
  581. SULFASALAZINE [Suspect]
     Active Substance: SULFASALAZINE
     Indication: Colitis ulcerative
     Route: 065
  582. SULFASALAZINE [Suspect]
     Active Substance: SULFASALAZINE
     Indication: Product used for unknown indication
     Route: 065
  583. SULFASALAZINE [Suspect]
     Active Substance: SULFASALAZINE
     Route: 065
  584. SULFASALAZINE [Suspect]
     Active Substance: SULFASALAZINE
     Route: 065
  585. SULFASALAZINE [Suspect]
     Active Substance: SULFASALAZINE
     Route: 065
  586. SULFASALAZINE [Suspect]
     Active Substance: SULFASALAZINE
     Route: 065
  587. SULFASALAZINE [Suspect]
     Active Substance: SULFASALAZINE
     Route: 065
  588. SULFASALAZINE [Suspect]
     Active Substance: SULFASALAZINE
     Route: 065
  589. SULFASALAZINE [Suspect]
     Active Substance: SULFASALAZINE
     Route: 065
  590. SULFASALAZINE [Suspect]
     Active Substance: SULFASALAZINE
     Route: 065
  591. SULFASALAZINE [Suspect]
     Active Substance: SULFASALAZINE
     Route: 065
  592. SULFASALAZINE [Suspect]
     Active Substance: SULFASALAZINE
     Route: 065
  593. SULFASALAZINE [Suspect]
     Active Substance: SULFASALAZINE
     Route: 065
  594. SULFASALAZINE [Suspect]
     Active Substance: SULFASALAZINE
     Route: 065
  595. SULFASALAZINE [Suspect]
     Active Substance: SULFASALAZINE
     Route: 065
  596. SULFASALAZINE [Suspect]
     Active Substance: SULFASALAZINE
     Route: 065
  597. SULFASALAZINE [Suspect]
     Active Substance: SULFASALAZINE
     Route: 065
  598. SULFASALAZINE [Suspect]
     Active Substance: SULFASALAZINE
     Route: 065
  599. SULFASALAZINE [Suspect]
     Active Substance: SULFASALAZINE
     Route: 065
  600. TOZINAMERAN [Suspect]
     Active Substance: TOZINAMERAN
     Indication: Product used for unknown indication
     Route: 065
  601. VITAMIN D3 [Suspect]
     Active Substance: CHOLECALCIFEROL
     Indication: Product used for unknown indication
     Dosage: 100 MG, QD
     Route: 065
  602. VYVANSE [Suspect]
     Active Substance: LISDEXAMFETAMINE DIMESYLATE
     Indication: Attention deficit hyperactivity disorder
     Route: 065
  603. VYVANSE [Suspect]
     Active Substance: LISDEXAMFETAMINE DIMESYLATE
     Indication: Attention deficit hyperactivity disorder
     Route: 065
  604. VYVANSE [Suspect]
     Active Substance: LISDEXAMFETAMINE DIMESYLATE
     Route: 065
  605. WARFARIN [Suspect]
     Active Substance: WARFARIN
     Dosage: 1 DF 1 EVERY 1 DAY
     Route: 065
  606. WARFARIN [Suspect]
     Active Substance: WARFARIN
     Route: 048
  607. WARFARIN [Suspect]
     Active Substance: WARFARIN
     Route: 048
  608. WARFARIN [Suspect]
     Active Substance: WARFARIN
     Route: 048
  609. WARFARIN [Suspect]
     Active Substance: WARFARIN
     Route: 048
  610. WARFARIN [Suspect]
     Active Substance: WARFARIN
     Route: 048
  611. WARFARIN [Suspect]
     Active Substance: WARFARIN
     Route: 048
  612. WARFARIN [Suspect]
     Active Substance: WARFARIN
     Route: 048
  613. WARFARIN [Suspect]
     Active Substance: WARFARIN
     Route: 048
  614. WARFARIN [Suspect]
     Active Substance: WARFARIN
     Route: 048
  615. WARFARIN [Suspect]
     Active Substance: WARFARIN
     Route: 048
  616. WARFARIN [Suspect]
     Active Substance: WARFARIN
     Route: 048
  617. WARFARIN [Suspect]
     Active Substance: WARFARIN
     Route: 048
  618. WARFARIN [Suspect]
     Active Substance: WARFARIN
     Route: 048
  619. WARFARIN [Suspect]
     Active Substance: WARFARIN
     Route: 048
  620. WARFARIN [Suspect]
     Active Substance: WARFARIN
     Dosage: 8 DF, QW
     Route: 048
  621. WARFARIN [Suspect]
     Active Substance: WARFARIN
     Dosage: 8 DF, QW
     Route: 048
  622. WARFARIN [Suspect]
     Active Substance: WARFARIN
     Dosage: 8 DF, QW
     Route: 048
  623. WARFARIN [Suspect]
     Active Substance: WARFARIN
     Dosage: 8 DF, QW
     Route: 048
  624. WARFARIN [Suspect]
     Active Substance: WARFARIN
     Dosage: 8 DF, QW
     Route: 048
  625. WARFARIN [Suspect]
     Active Substance: WARFARIN
     Dosage: 8 DF, QW
     Route: 048
  626. WARFARIN [Suspect]
     Active Substance: WARFARIN
     Dosage: 8 DF, QW
     Route: 048
  627. WARFARIN [Suspect]
     Active Substance: WARFARIN
     Dosage: 8 DF, QW
     Route: 048
  628. WARFARIN [Suspect]
     Active Substance: WARFARIN
     Dosage: 8 DF, QW
     Route: 048
  629. WARFARIN [Suspect]
     Active Substance: WARFARIN
     Dosage: 8 DF, QW
     Route: 048
  630. WARFARIN [Suspect]
     Active Substance: WARFARIN
     Dosage: 8 DF, QW
     Route: 048
  631. WARFARIN [Suspect]
     Active Substance: WARFARIN
     Dosage: 8 DF, QW
     Route: 048
  632. WARFARIN [Suspect]
     Active Substance: WARFARIN
     Dosage: 8 DF, QW
     Route: 048
  633. WARFARIN [Suspect]
     Active Substance: WARFARIN
     Dosage: 8 DF, QW
     Route: 048
  634. WARFARIN [Suspect]
     Active Substance: WARFARIN
     Dosage: 8 DF, QW
     Route: 048
  635. WARFARIN [Suspect]
     Active Substance: WARFARIN
     Dosage: 8 DF, QW
     Route: 048
  636. WARFARIN [Suspect]
     Active Substance: WARFARIN
     Dosage: 8 DF, QW
     Route: 048
  637. WARFARIN [Suspect]
     Active Substance: WARFARIN
     Dosage: 8 DF, QW
     Route: 048
  638. WARFARIN [Suspect]
     Active Substance: WARFARIN
     Route: 048
  639. WARFARIN [Suspect]
     Active Substance: WARFARIN
     Route: 048
  640. WARFARIN [Suspect]
     Active Substance: WARFARIN
     Route: 048
  641. WARFARIN [Suspect]
     Active Substance: WARFARIN
     Route: 048
  642. WARFARIN [Suspect]
     Active Substance: WARFARIN
     Route: 065
  643. WARFARIN [Suspect]
     Active Substance: WARFARIN
     Route: 048
  644. WARFARIN [Suspect]
     Active Substance: WARFARIN
     Route: 048
  645. WARFARIN [Suspect]
     Active Substance: WARFARIN
     Route: 048
  646. WARFARIN [Suspect]
     Active Substance: WARFARIN
     Route: 048
  647. WARFARIN [Suspect]
     Active Substance: WARFARIN
     Route: 048
  648. WARFARIN [Suspect]
     Active Substance: WARFARIN
     Route: 048
  649. WARFARIN [Suspect]
     Active Substance: WARFARIN
     Route: 048
  650. WARFARIN [Suspect]
     Active Substance: WARFARIN
     Route: 048
  651. WARFARIN [Suspect]
     Active Substance: WARFARIN
     Route: 048
  652. WARFARIN [Suspect]
     Active Substance: WARFARIN
     Indication: Colitis ulcerative
     Route: 065
  653. WARFARIN [Suspect]
     Active Substance: WARFARIN
     Indication: Deep vein thrombosis
     Route: 065
  654. WARFARIN SODIUM [Suspect]
     Active Substance: WARFARIN SODIUM
     Dosage: 1 DF, QD
     Route: 048
  655. WARFARIN SODIUM [Suspect]
     Active Substance: WARFARIN SODIUM
     Dosage: 1 DF, QD
     Route: 048
  656. WARFARIN SODIUM [Suspect]
     Active Substance: WARFARIN SODIUM
     Dosage: 1 DF, QD
     Route: 048
  657. WARFARIN SODIUM [Suspect]
     Active Substance: WARFARIN SODIUM
     Dosage: 1 DF, QD
     Route: 048
  658. WARFARIN SODIUM [Suspect]
     Active Substance: WARFARIN SODIUM
     Dosage: 1 DF, QD
     Route: 048
  659. WARFARIN SODIUM [Suspect]
     Active Substance: WARFARIN SODIUM
     Dosage: 1 DF, QD
     Route: 048
  660. WARFARIN SODIUM [Suspect]
     Active Substance: WARFARIN SODIUM
     Dosage: 1 DF, QD,1 EVERY 8 WEEKS
     Route: 048
  661. WARFARIN SODIUM [Suspect]
     Active Substance: WARFARIN SODIUM
     Route: 048
  662. WARFARIN SODIUM [Suspect]
     Active Substance: WARFARIN SODIUM
     Indication: Colitis ulcerative
     Route: 048
  663. WARFARIN SODIUM [Suspect]
     Active Substance: WARFARIN SODIUM
     Indication: Deep vein thrombosis
     Route: 048
  664. WARFARIN SODIUM [Suspect]
     Active Substance: WARFARIN SODIUM
     Route: 048
  665. WARFARIN SODIUM [Suspect]
     Active Substance: WARFARIN SODIUM
     Route: 048
  666. WARFARIN SODIUM [Suspect]
     Active Substance: WARFARIN SODIUM
     Route: 048
  667. WARFARIN SODIUM [Suspect]
     Active Substance: WARFARIN SODIUM
     Route: 048
  668. WARFARIN SODIUM [Suspect]
     Active Substance: WARFARIN SODIUM
     Route: 048
  669. WARFARIN SODIUM [Suspect]
     Active Substance: WARFARIN SODIUM
     Route: 065
  670. WARFARIN SODIUM [Suspect]
     Active Substance: WARFARIN SODIUM
     Route: 048
  671. WARFARIN SODIUM [Suspect]
     Active Substance: WARFARIN SODIUM
     Route: 048
  672. WARFARIN SODIUM [Suspect]
     Active Substance: WARFARIN SODIUM
     Route: 048
  673. WARFARIN SODIUM [Suspect]
     Active Substance: WARFARIN SODIUM
     Route: 048
  674. WARFARIN SODIUM [Suspect]
     Active Substance: WARFARIN SODIUM
     Route: 048
  675. WARFARIN SODIUM [Suspect]
     Active Substance: WARFARIN SODIUM
     Route: 048
  676. WARFARIN SODIUM [Suspect]
     Active Substance: WARFARIN SODIUM
     Route: 048
  677. WARFARIN SODIUM [Suspect]
     Active Substance: WARFARIN SODIUM
     Route: 048
  678. WARFARIN SODIUM [Suspect]
     Active Substance: WARFARIN SODIUM
     Route: 048
  679. WARFARIN SODIUM [Suspect]
     Active Substance: WARFARIN SODIUM
     Route: 048
  680. WARFARIN SODIUM [Suspect]
     Active Substance: WARFARIN SODIUM
     Route: 048
  681. WARFARIN SODIUM [Suspect]
     Active Substance: WARFARIN SODIUM
     Route: 048
  682. ALGINIC ACID [Concomitant]
     Active Substance: ALGINIC ACID
     Indication: Product used for unknown indication
     Route: 065
  683. ALGINIC ACID\ALUMINUM HYDROXIDE\MAGNESIUM TRISILICATE\SODIUM BICARBONA [Concomitant]
     Active Substance: ALGINIC ACID\ALUMINUM HYDROXIDE\MAGNESIUM TRISILICATE\SODIUM BICARBONATE
     Indication: Product used for unknown indication
     Route: 065
  684. Alginic acid;Aluminium hydroxide;Sodium alginate;Sodium bicarbonate [Concomitant]
     Indication: Product used for unknown indication
     Route: 065
  685. AMLODIPINE BESYLATE [Concomitant]
     Active Substance: AMLODIPINE BESYLATE
     Route: 065
  686. AMLODIPINE BESYLATE [Concomitant]
     Active Substance: AMLODIPINE BESYLATE
     Indication: Product used for unknown indication
     Route: 065
  687. AMLODIPINE BESYLATE [Concomitant]
     Active Substance: AMLODIPINE BESYLATE
     Route: 065
  688. ATORVASTATIN [Concomitant]
     Active Substance: ATORVASTATIN
     Indication: Product used for unknown indication
     Route: 065
  689. ATORVASTATIN [Concomitant]
     Active Substance: ATORVASTATIN
     Route: 065
  690. ATORVASTATIN CALCIUM [Concomitant]
     Active Substance: ATORVASTATIN CALCIUM
     Indication: Product used for unknown indication
     Route: 065
  691. ATORVASTATIN CALCIUM [Concomitant]
     Active Substance: ATORVASTATIN CALCIUM
     Route: 065
  692. BETNOVATE [Concomitant]
     Active Substance: BETAMETHASONE
     Indication: Ill-defined disorder
     Route: 065
  693. BISOPROLOL [Concomitant]
     Active Substance: BISOPROLOL
     Indication: Dyscalculia
     Route: 065
  694. BISOPROLOL [Concomitant]
     Active Substance: BISOPROLOL
     Indication: Ill-defined disorder
     Route: 065
  695. CALCIUM CARBONATE [Concomitant]
     Active Substance: CALCIUM CARBONATE
     Indication: Product used for unknown indication
     Route: 065
  696. CALCIUM CARBONATE\CHOLECALCIFEROL [Concomitant]
     Active Substance: CALCIUM CARBONATE\CHOLECALCIFEROL
     Route: 065
  697. CALCIUM CARBONATE\CHOLECALCIFEROL [Concomitant]
     Active Substance: CALCIUM CARBONATE\CHOLECALCIFEROL
     Route: 065
  698. CALCIUM CARBONATE\CHOLECALCIFEROL [Concomitant]
     Active Substance: CALCIUM CARBONATE\CHOLECALCIFEROL
     Indication: Product used for unknown indication
     Route: 065
  699. Calcium carbonate;Sodium alginate;Sodium bicarbonate [Concomitant]
     Indication: Product used for unknown indication
     Route: 065
  700. CITALOPRAM HYDROBROMIDE [Concomitant]
     Active Substance: CITALOPRAM HYDROBROMIDE
     Route: 065
  701. CITALOPRAM HYDROBROMIDE [Concomitant]
     Active Substance: CITALOPRAM HYDROBROMIDE
     Indication: Ill-defined disorder
     Route: 065
  702. CLOBETASONE BUTYRATE [Concomitant]
     Active Substance: CLOBETASONE BUTYRATE
     Indication: Ill-defined disorder
     Route: 065
  703. CLOBETASONE BUTYRATE [Concomitant]
     Active Substance: CLOBETASONE BUTYRATE
     Indication: Dyscalculia
  704. DORZOLAMIDE HYDROCHLORIDE [Concomitant]
     Active Substance: DORZOLAMIDE HYDROCHLORIDE
     Indication: Product used for unknown indication
     Route: 065
  705. EMPAGLIFLOZIN [Concomitant]
     Active Substance: EMPAGLIFLOZIN
     Indication: Product used for unknown indication
     Route: 065
  706. UNSPECIFIED INGREDIENT [Concomitant]
     Active Substance: UNSPECIFIED INGREDIENT
     Indication: Product used for unknown indication
     Route: 047
  707. FESOTERODINE FUMARATE [Concomitant]
     Active Substance: FESOTERODINE FUMARATE
     Indication: Product used for unknown indication
     Route: 065
  708. FOLIC ACID [Concomitant]
     Active Substance: FOLIC ACID
     Indication: Product used for unknown indication
     Route: 065
  709. LANSOPRAZOLE [Concomitant]
     Active Substance: LANSOPRAZOLE
     Indication: Product used for unknown indication
     Route: 065
  710. LATANOPROST [Concomitant]
     Active Substance: LATANOPROST
     Indication: Product used for unknown indication
     Route: 047
  711. LATANOPROST [Concomitant]
     Active Substance: LATANOPROST
     Route: 065
  712. LYRICA [Concomitant]
     Active Substance: PREGABALIN
     Indication: Product used for unknown indication
     Route: 065
  713. POLYETHYLENE GLYCOL 3350\POTASSIUM CHLORIDE\SODIUM BICARBONATE\SODIUM [Concomitant]
     Active Substance: POLYETHYLENE GLYCOL 3350\POTASSIUM CHLORIDE\SODIUM BICARBONATE\SODIUM CHLORIDE
     Indication: Product used for unknown indication
     Route: 065
  714. POLYETHYLENE GLYCOL 3350\POTASSIUM CHLORIDE\SODIUM BICARBONATE\SODIUM [Concomitant]
     Active Substance: POLYETHYLENE GLYCOL 3350\POTASSIUM CHLORIDE\SODIUM BICARBONATE\SODIUM CHLORIDE
     Route: 065
  715. METHOTREXATE [Concomitant]
     Active Substance: METHOTREXATE
     Indication: Colitis ulcerative
     Route: 065
  716. METHOTREXATE [Concomitant]
     Active Substance: METHOTREXATE
     Route: 065
  717. NAPHAZOLINE HYDROCHLORIDE [Concomitant]
     Active Substance: NAPHAZOLINE HYDROCHLORIDE
     Indication: Ill-defined disorder
     Route: 065
  718. NITROFURANTOIN [Concomitant]
     Active Substance: NITROFURANTOIN
     Indication: Ill-defined disorder
     Route: 065
  719. PARAFFIN [Concomitant]
     Active Substance: PARAFFIN
     Indication: Product used for unknown indication
     Route: 065
  720. PRAVASTATIN [Concomitant]
     Active Substance: PRAVASTATIN
     Indication: Ill-defined disorder
     Route: 065
  721. RAMIPRIL [Concomitant]
     Active Substance: RAMIPRIL
     Indication: Ill-defined disorder
     Route: 065
  722. RAMIPRIL [Concomitant]
     Active Substance: RAMIPRIL
     Route: 065
  723. RIVAROXABAN [Concomitant]
     Active Substance: RIVAROXABAN
     Indication: Ill-defined disorder
     Route: 065
  724. TAMSULOSIN HYDROCHLORIDE [Concomitant]
     Active Substance: TAMSULOSIN HYDROCHLORIDE
     Indication: Product used for unknown indication
     Route: 065
  725. TETRAHYDROZOLINE HYDROCHLORIDE [Concomitant]
     Active Substance: TETRAHYDROZOLINE HYDROCHLORIDE
     Indication: Product used for unknown indication
     Route: 065
  726. TOFACITINIB CITRATE [Concomitant]
     Active Substance: TOFACITINIB CITRATE
     Indication: Product used for unknown indication
     Route: 065
  727. XELJANZ [Concomitant]
     Active Substance: TOFACITINIB CITRATE
     Indication: Colitis ulcerative
     Dosage: 10 MG, 2 EVERY 1 DAY
     Route: 065
  728. XELJANZ [Concomitant]
     Active Substance: TOFACITINIB CITRATE
     Route: 065
  729. XELJANZ [Concomitant]
     Active Substance: TOFACITINIB CITRATE
     Dosage: 5 MG, QD
     Route: 048

REACTIONS (13)
  - Abdominal discomfort [Not Recovered/Not Resolved]
  - Accidental overdose [Not Recovered/Not Resolved]
  - Adverse drug reaction [Not Recovered/Not Resolved]
  - Arthritis [Not Recovered/Not Resolved]
  - Bronchiectasis [Not Recovered/Not Resolved]
  - Burns second degree [Not Recovered/Not Resolved]
  - COVID-19 [Not Recovered/Not Resolved]
  - Cardiac murmur [Not Recovered/Not Resolved]
  - Catarrh [Not Recovered/Not Resolved]
  - Cerebrovascular accident [Not Recovered/Not Resolved]
  - Colitis ulcerative [Not Recovered/Not Resolved]
  - Condition aggravated [Not Recovered/Not Resolved]
  - Confusional state [Not Recovered/Not Resolved]
